FAERS Safety Report 11128308 (Version 1)
Quarter: 2015Q2

REPORT INFORMATION
  Report Type: Spontaneous
  Country: IT (occurrence: IT)
  Receive Date: 20150521
  Receipt Date: 20150521
  Transmission Date: 20150821
  Serious: Yes (Hospitalization, Other)
  Sender: FDA-Public Use
  Company Number: IT-PFIZER INC-2015170844

PATIENT
  Age: 86 Year
  Sex: Female

DRUGS (7)
  1. DOXAZOSIN [Concomitant]
     Active Substance: DOXAZOSIN\DOXAZOSIN MESYLATE
  2. XANAX [Suspect]
     Active Substance: ALPRAZOLAM
     Indication: DEPRESSION
     Dosage: UNK
     Route: 048
     Dates: start: 20140919, end: 20140919
  3. LASIX [Concomitant]
     Active Substance: FUROSEMIDE
     Dosage: 50 MG, UNK
     Route: 048
  4. RIOPAN /00141701/ [Concomitant]
  5. CYMBALTA [Concomitant]
     Active Substance: DULOXETINE HYDROCHLORIDE
  6. TAVOR [Suspect]
     Active Substance: LORAZEPAM
     Indication: DEPRESSION
     Dosage: 2.5 MG, DAILY
     Route: 048
     Dates: start: 20140101, end: 20140919
  7. LANSOX [Concomitant]
     Active Substance: LANSOPRAZOLE

REACTIONS (3)
  - Respiratory failure [Unknown]
  - Sopor [Unknown]
  - Self injurious behaviour [Unknown]

NARRATIVE: CASE EVENT DATE: 20140919
